FAERS Safety Report 5915435-5 (Version None)
Quarter: 2008Q4

REPORT INFORMATION
  Report Type: 
  Country: None (occurrence: None)
  Receive Date: 20081009
  Receipt Date: 20081009
  Transmission Date: 20090506
  Serious: Yes (Other)
  Sender: FDA-Public Use
  Company Number: None

PATIENT
  Age: 24 Year
  Sex: Female
  Weight: 54.4316 kg

DRUGS (1)
  1. YAZ [Suspect]
     Indication: CONTRACEPTION
     Dosage: ONE PILL DAILY PO
     Route: 048
     Dates: start: 20071102, end: 20080501

REACTIONS (7)
  - ABDOMINAL PAIN LOWER [None]
  - DEPRESSION [None]
  - LOSS OF CONSCIOUSNESS [None]
  - MOOD ALTERED [None]
  - MUSCLE SPASMS [None]
  - NIGHTMARE [None]
  - VOMITING [None]
